FAERS Safety Report 20461336 (Version 1)
Quarter: 2022Q1

REPORT INFORMATION
  Report Type: Spontaneous
  Country: US (occurrence: None)
  Receive Date: 20220210
  Receipt Date: 20220210
  Transmission Date: 20220424
  Serious: Yes (Other)
  Sender: FDA-Public Use
  Company Number: None

PATIENT
  Age: 37 Year
  Sex: Female
  Weight: 76.5 kg

DRUGS (1)
  1. DYSPORT [Suspect]
     Active Substance: ABOBOTULINUMTOXINA
     Indication: Muscle spasticity
     Dosage: OTHER FREQUENCY : ONCE;?
     Route: 030
     Dates: start: 20211111, end: 20211111

REACTIONS (14)
  - Muscular weakness [None]
  - Muscular weakness [None]
  - Back pain [None]
  - Muscular weakness [None]
  - Limb discomfort [None]
  - Gait disturbance [None]
  - Photophobia [None]
  - Diarrhoea [None]
  - Dizziness [None]
  - Fall [None]
  - Blood creatine phosphokinase increased [None]
  - Blood thyroid stimulating hormone increased [None]
  - Anti-thyroid antibody increased [None]
  - Botulism [None]

NARRATIVE: CASE EVENT DATE: 20211111
